FAERS Safety Report 6226333-4 (Version None)
Quarter: 2009Q2

REPORT INFORMATION
  Report Type: 
  Country: None (occurrence: None)
  Receive Date: 20090610
  Receipt Date: 20090511
  Transmission Date: 20091009
  Serious: Yes (Other)
  Sender: FDA-Public Use
  Company Number: 2009S1008413

PATIENT
  Age: 25 Year
  Sex: Male

DRUGS (1)
  1. CIPROFLOXACIN [Suspect]
     Indication: TYPHOID FEVER
     Dosage: 500 MG; TWICE A DAY; ORAL, 750 MG; TWICE A DAY; ORAL
     Route: 048

REACTIONS (3)
  - DRUG INEFFECTIVE [None]
  - PARATYPHOID FEVER [None]
  - TYPHOID FEVER [None]
